FAERS Safety Report 15713368 (Version 2)
Quarter: 2018Q4

REPORT INFORMATION
  Report Type: Spontaneous
  Country: US (occurrence: US)
  Receive Date: 20181212
  Receipt Date: 20181221
  Transmission Date: 20190205
  Serious: No
  Sender: FDA-Public Use
  Company Number: US-GLAXOSMITHKLINE-US2018GSK215647

PATIENT
  Age: 46 Year
  Sex: Female

DRUGS (2)
  1. BENLYSTA [Suspect]
     Active Substance: BELIMUMAB
     Indication: SYSTEMIC LUPUS ERYTHEMATOSUS
  2. BENLYSTA [Suspect]
     Active Substance: BELIMUMAB
     Indication: SYSTEMIC LUPUS ERYTHEMATOSUS

REACTIONS (8)
  - Malaise [Unknown]
  - Pain [Unknown]
  - Pyrexia [Unknown]
  - Influenza like illness [Unknown]
  - Ill-defined disorder [Unknown]
  - Asthenia [Unknown]
  - Migraine [Unknown]
  - Dizziness [Unknown]
